FAERS Safety Report 6143107-3 (Version None)
Quarter: 2009Q2

REPORT INFORMATION
  Report Type: 
  Country: None (occurrence: None)
  Receive Date: 20090401
  Receipt Date: 20090401
  Transmission Date: 20091009
  Serious: No
  Sender: FDA-Public Use
  Company Number: None

PATIENT
  Age: 84 Year
  Sex: Male
  Weight: 71 kg

DRUGS (1)
  1. CLOPIDOGREL [Suspect]
     Indication: ANGIOPATHY
     Dosage: 75 MG EVERY DAY PO
     Route: 048
     Dates: start: 20050622, end: 20090318

REACTIONS (1)
  - THROMBOCYTOPENIA [None]
